FAERS Safety Report 6266602-5 (Version None)
Quarter: 2009Q3

REPORT INFORMATION
  Report Type: 
  Country: None (occurrence: None)
  Receive Date: 20090709
  Receipt Date: 20090625
  Transmission Date: 20100115
  Serious: Yes (Hospitalization)
  Sender: FDA-Public Use
  Company Number: 237138K09USA

PATIENT
  Age: 33 Year
  Sex: Female

DRUGS (7)
  1. REBIF [Suspect]
     Indication: MULTIPLE SCLEROSIS
     Dosage: 44 MCG, 3 IN 1 WEEKS, SUBCUTANEOUS
     Route: 058
     Dates: start: 20090403, end: 20090601
  2. LITHIUM CARBONATE [Concomitant]
  3. NEURONTIN [Concomitant]
  4. EFFEXOR [Concomitant]
  5. PROVIGIL [Concomitant]
  6. RELPAX [Concomitant]
  7. KLONOPIN [Concomitant]

REACTIONS (3)
  - CONDITION AGGRAVATED [None]
  - PSYCHOTIC DISORDER [None]
  - TREMOR [None]
